FAERS Safety Report 15391662 (Version 1)
Quarter: 2018Q3

REPORT INFORMATION
  Report Type: Spontaneous
  Country: FR (occurrence: FR)
  Receive Date: 20180917
  Receipt Date: 20180917
  Transmission Date: 20181010
  Serious: Yes (Death)
  Sender: FDA-Public Use
  Company Number: FR-TEVA-2018-FR-955089

PATIENT
  Age: 89 Year
  Sex: Female

DRUGS (5)
  1. HYDROCHLOROTHIAZIDE. [Concomitant]
     Active Substance: HYDROCHLOROTHIAZIDE
     Route: 065
  2. AMILORIDE (CHLORHYDRATE D^) [Concomitant]
     Route: 065
  3. METFORMINE [Suspect]
     Active Substance: METFORMIN HYDROCHLORIDE
     Indication: TYPE 2 DIABETES MELLITUS
     Dosage: 1500 MILLIGRAM DAILY;
     Route: 048
     Dates: end: 201808
  4. BETAHISTINE (CHLORHYDRATE) [Concomitant]
     Active Substance: BETAHISTINE HYDROCHLORIDE
     Route: 065
  5. CELIPROLOL [Concomitant]
     Active Substance: CELIPROLOL
     Route: 065

REACTIONS (2)
  - Lactic acidosis [Fatal]
  - Respiratory distress [Fatal]

NARRATIVE: CASE EVENT DATE: 20180824
